FAERS Safety Report 9852941 (Version 2)
Quarter: 2014Q1

REPORT INFORMATION
  Report Type: Report from Study
  Country: JP (occurrence: JP)
  Receive Date: 20140129
  Receipt Date: 20140331
  Transmission Date: 20141002
  Serious: Yes (Death, Hospitalization)
  Sender: FDA-Public Use
  Company Number: JP-SA-2014SA010780

PATIENT
  Age: 67 Year
  Sex: Male
  Weight: 50.9 kg

DRUGS (16)
  1. THYMOGLOBULINE [Suspect]
     Indication: APLASTIC ANAEMIA
     Route: 042
     Dates: start: 20130605, end: 20130609
  2. NEORAL [Concomitant]
     Indication: APLASTIC ANAEMIA
     Dates: end: 20130629
  3. SOLU-MEDROL [Concomitant]
     Indication: PROPHYLAXIS
     Dates: start: 20130605, end: 20130609
  4. PREDONINE [Concomitant]
     Indication: APLASTIC ANAEMIA
     Dates: end: 20130629
  5. BACTRAMIN [Concomitant]
     Indication: PNEUMOCYSTIS JIROVECII PNEUMONIA
     Dates: end: 20130629
  6. PRIMOBOLAN [Concomitant]
     Indication: APLASTIC ANAEMIA
     Dates: end: 20130629
  7. METGLUCO [Concomitant]
     Indication: DIABETES MELLITUS
     Dates: end: 20130629
  8. AMARYL [Concomitant]
     Indication: DIABETES MELLITUS
     Dates: end: 20130629
  9. ITRIZOLE [Concomitant]
     Indication: PROPHYLAXIS
     Dates: end: 20130629
  10. DEFERASIROX [Concomitant]
     Indication: IRON OVERLOAD
     Dates: end: 20130629
  11. NEXIUM [Concomitant]
     Indication: PROPHYLAXIS AGAINST GASTROINTESTINAL ULCER
     Dates: end: 20130629
  12. GRAN [Concomitant]
     Indication: NEUTROPENIA
     Dates: end: 20130629
  13. SOLU-CORTEF [Concomitant]
     Indication: ALLERGY PROPHYLAXIS
     Dates: end: 20130629
  14. CYCLOSPORINE [Concomitant]
     Indication: APLASTIC ANAEMIA
     Dates: end: 20130629
  15. PROTEIN SUPPLEMENTS [Concomitant]
     Indication: APLASTIC ANAEMIA
     Dates: end: 20130629
  16. CORTICOSTEROID NOS [Concomitant]
     Indication: APLASTIC ANAEMIA
     Dates: end: 20130629

REACTIONS (2)
  - Febrile neutropenia [Fatal]
  - Febrile neutropenia [Recovered/Resolved]
